FAERS Safety Report 14030344 (Version 1)
Quarter: 2017Q4

REPORT INFORMATION
  Report Type: Report from Study
  Country: None (occurrence: US)
  Receive Date: 20171001
  Receipt Date: 20171001
  Transmission Date: 20180321
  Serious: Yes (Death, Other)
  Sender: FDA-Public Use
  Company Number: US-ABBVIE-17K-163-2117455-00

PATIENT
  Sex: Male

DRUGS (1)
  1. HUMIRA [Suspect]
     Active Substance: ADALIMUMAB
     Indication: ARTHRITIS
     Route: 058
     Dates: start: 2008, end: 2010

REACTIONS (3)
  - Diabetes mellitus [Unknown]
  - Death [Fatal]
  - Hip arthroplasty [Unknown]

NARRATIVE: CASE EVENT DATE: 2013
